FAERS Safety Report 15366876 (Version 1)
Quarter: 2018Q3

REPORT INFORMATION
  Report Type: Spontaneous
  Country: US (occurrence: US)
  Receive Date: 20180902
  Receipt Date: 20180902
  Transmission Date: 20181010
  Serious: No
  Sender: FDA-Public Use
  Company Number: None

PATIENT
  Age: 73 Year
  Sex: Female
  Weight: 81 kg

DRUGS (13)
  1. ATARAX [Concomitant]
     Active Substance: HYDROXYZINE HYDROCHLORIDE
  2. POTASSIUM [Concomitant]
     Active Substance: POTASSIUM
  3. SLEEP MAC [Concomitant]
  4. DOXYCYCLINE HYCLATE. [Suspect]
     Active Substance: DOXYCYCLINE HYCLATE
     Indication: PERIPHERAL SWELLING
     Dosage: ?          QUANTITY:2 CAPSULE(S);?
     Route: 048
     Dates: start: 20180831, end: 20180901
  5. METOPROLOL. [Concomitant]
     Active Substance: METOPROLOL
  6. DOXYCYCLINE HYCLATE. [Suspect]
     Active Substance: DOXYCYCLINE HYCLATE
     Indication: CONTUSION
     Dosage: ?          QUANTITY:2 CAPSULE(S);?
     Route: 048
     Dates: start: 20180831, end: 20180901
  7. VITAMIN C [Concomitant]
     Active Substance: ASCORBIC ACID
  8. DOXYCYCLINE HYCLATE. [Suspect]
     Active Substance: DOXYCYCLINE HYCLATE
     Indication: ANIMAL SCRATCH
     Dosage: ?          QUANTITY:2 CAPSULE(S);?
     Route: 048
     Dates: start: 20180831, end: 20180901
  9. OXYGEN MACHINE [Concomitant]
  10. IRBESARTAN. [Concomitant]
     Active Substance: IRBESARTAN
  11. FUROSEMIDE. [Concomitant]
     Active Substance: FUROSEMIDE
  12. TRIAMCINOLONE CREAM 0.1% [Concomitant]
     Active Substance: TRIAMCINOLONE
  13. WARFARIN [Concomitant]
     Active Substance: WARFARIN

REACTIONS (3)
  - Diarrhoea [None]
  - Vomiting [None]
  - Nausea [None]

NARRATIVE: CASE EVENT DATE: 20180831
